FAERS Safety Report 9395762 (Version 2)
Quarter: 2014Q1

REPORT INFORMATION
  Report Type: Spontaneous
  Country: US (occurrence: US)
  Receive Date: 20130711
  Receipt Date: 20140121
  Transmission Date: 20141002
  Serious: Yes (Other)
  Sender: FDA-Public Use
  Company Number: US-PFIZER INC-2013203565

PATIENT
  Age: 55 Year
  Sex: Female
  Weight: 95.7 kg

DRUGS (2)
  1. NEURONTIN [Suspect]
     Indication: DIABETIC NEUROPATHY
     Dosage: 400 MG, 3X/DAY
  2. NEURONTIN [Suspect]
     Dosage: 800 MG, 4X/DAY

REACTIONS (6)
  - Leukaemia [Unknown]
  - Diabetes mellitus [Unknown]
  - Renal disorder [Unknown]
  - Stomatitis [Unknown]
  - Anaemia [Unknown]
  - Memory impairment [Unknown]
